FAERS Safety Report 10614760 (Version 1)
Quarter: 2014Q4

REPORT INFORMATION
  Report Type: Spontaneous
  Country: US (occurrence: US)
  Receive Date: 20141201
  Receipt Date: 20141201
  Transmission Date: 20150529
  Serious: Yes (Other)
  Sender: FDA-Public Use
  Company Number: US-AMGEN-USASP2014092603

PATIENT
  Age: 52 Year
  Sex: Female

DRUGS (2)
  1. ENBREL [Suspect]
     Active Substance: ETANERCEPT
     Indication: RHEUMATOID ARTHRITIS
     Dosage: 50 MG, QWK
     Route: 065
     Dates: start: 200901
  2. METHOTREXATE [Concomitant]
     Active Substance: METHOTREXATE
     Dosage: EIGHT 2.5 TABLETS ONCE WEEKLY
     Dates: start: 200901

REACTIONS (3)
  - Rheumatoid arthritis [Not Recovered/Not Resolved]
  - Hearing impaired [Not Recovered/Not Resolved]
  - Upper respiratory tract infection [Not Recovered/Not Resolved]

NARRATIVE: CASE EVENT DATE: 2014
